FAERS Safety Report 5692091-5 (Version None)
Quarter: 2008Q2

REPORT INFORMATION
  Report Type: 
  Country: None (occurrence: None)
  Receive Date: 20080402
  Receipt Date: 20080324
  Transmission Date: 20081010
  Serious: Yes (Other)
  Sender: FDA-Public Use
  Company Number: US-PFIZER INC-2007036246

PATIENT
  Sex: Male
  Weight: 86.363 kg

DRUGS (6)
  1. XALATAN [Suspect]
     Indication: GLAUCOMA
     Dates: start: 20040101, end: 20060101
  2. XALATAN [Suspect]
     Indication: INTRAOCULAR PRESSURE INCREASED
  3. LUMIGAN [Concomitant]
  4. LOVASTATIN [Concomitant]
  5. LISINOPRIL [Concomitant]
  6. ATENOLOL [Concomitant]
     Indication: BLOOD PRESSURE

REACTIONS (6)
  - EAR DISCOMFORT [None]
  - INTRAOCULAR PRESSURE INCREASED [None]
  - MUCOUS MEMBRANE DISORDER [None]
  - RHINORRHOEA [None]
  - VITREOUS DETACHMENT [None]
  - VITREOUS FLOATERS [None]
